FAERS Safety Report 21380723 (Version 3)
Quarter: 2022Q4

REPORT INFORMATION
  Report Type: Report from Study
  Country: US (occurrence: US)
  Receive Date: 20220927
  Receipt Date: 20221004
  Transmission Date: 20230113
  Serious: Yes (Hospitalization)
  Sender: FDA-Public Use
  Company Number: US-ABBVIE-22K-163-4479818-00

PATIENT
  Sex: Female
  Weight: 51.255 kg

DRUGS (10)
  1. DUOPA [Suspect]
     Active Substance: CARBIDOPA\LEVODOPA
     Indication: Parkinson^s disease
     Route: 050
     Dates: start: 20220208, end: 2022
  2. DUOPA [Suspect]
     Active Substance: CARBIDOPA\LEVODOPA
     Dosage: CONTINUOUS RATE WAS INCREASED TO 5.5 ML/HR
     Route: 050
     Dates: start: 202207
  3. ROPINIROLE [Concomitant]
     Active Substance: ROPINIROLE
     Indication: Tremor
  4. MIDODRINE [Concomitant]
     Active Substance: MIDODRINE
     Indication: Hypotension
  5. LORAZEPAM [Concomitant]
     Active Substance: LORAZEPAM
     Indication: Anxiety
  6. PFIZER-BIONTECH COVID-19 VACCINE [Concomitant]
     Active Substance: TOZINAMERAN
     Indication: COVID-19 immunisation
     Dosage: TIME INTERVAL: TOTAL: PFIZER
     Route: 030
  7. GLYCOPYRROLATE [Concomitant]
     Active Substance: GLYCOPYRROLATE
     Indication: Secretion discharge
  8. GAS-X [Concomitant]
     Active Substance: DIMETHICONE
     Indication: Flatulence
  9. LEXAPRO [Concomitant]
     Active Substance: ESCITALOPRAM OXALATE
     Indication: Anxiety
  10. CARBIDOPA\LEVODOPA [Concomitant]
     Active Substance: CARBIDOPA\LEVODOPA
     Indication: Product used for unknown indication

REACTIONS (6)
  - Hypotension [Recovered/Resolved]
  - Device occlusion [Not Recovered/Not Resolved]
  - Stress [Not Recovered/Not Resolved]
  - Hypotension [Recovered/Resolved]
  - Off label use [Not Recovered/Not Resolved]
  - Hospitalisation [Recovered/Resolved]

NARRATIVE: CASE EVENT DATE: 20220101
